FAERS Safety Report 12772402 (Version 1)
Quarter: 2016Q3

REPORT INFORMATION
  Report Type: Spontaneous
  Country: ES (occurrence: ES)
  Receive Date: 20160922
  Receipt Date: 20160922
  Transmission Date: 20161109
  Serious: Yes (Other)
  Sender: FDA-Public Use
  Company Number: ES-PFIZER INC-2016434743

PATIENT

DRUGS (1)
  1. MISOPROSTOL. [Suspect]
     Active Substance: MISOPROSTOL
     Dosage: 20 DF, (20 TABLETS OF 200 MICROGRAMS)
     Route: 064

REACTIONS (3)
  - Tachycardia foetal [Recovering/Resolving]
  - Maternal exposure during pregnancy [Unknown]
  - Premature baby [Unknown]
